FAERS Safety Report 7737721-9 (Version None)
Quarter: 2011Q3

REPORT INFORMATION
  Report Type: 
  Country: None (occurrence: None)
  Receive Date: 20110908
  Receipt Date: 20110904
  Transmission Date: 20111222
  Serious: Yes (Death, Hospitalization)
  Sender: FDA-Public Use
  Company Number: IN-ELI_LILLY_AND_COMPANY-IN201107004877

PATIENT
  Age: 58 Year
  Sex: Female

DRUGS (3)
  1. GEMCITABINE [Suspect]
     Dosage: 1600 MG, UNKNOWN
     Route: 065
     Dates: start: 20110703
  2. CARBOPLATIN [Concomitant]
     Dosage: 450 MG, UNKNOWN
     Route: 065
  3. GEMCITABINE [Concomitant]

REACTIONS (7)
  - RASH [None]
  - SEPSIS [None]
  - RESPIRATORY FAILURE [None]
  - PRURITUS [None]
  - NEUTROPENIA [None]
  - PNEUMONIA [None]
  - STOMATITIS [None]
